FAERS Safety Report 21581542 (Version 2)
Quarter: 2022Q4

REPORT INFORMATION
  Report Type: Spontaneous
  Country: US (occurrence: US)
  Receive Date: 20221111
  Receipt Date: 20221127
  Transmission Date: 20230112
  Serious: No
  Sender: FDA-Public Use
  Company Number: US-SANOFI-01355805

PATIENT
  Sex: Female

DRUGS (1)
  1. ALLEGRA D 12 HOUR ALLERGY AND CONGESTION [Suspect]
     Active Substance: FEXOFENADINE HYDROCHLORIDE\PSEUDOEPHEDRINE HYDROCHLORIDE
     Dosage: UNK

REACTIONS (4)
  - Nasopharyngitis [Unknown]
  - Constipation [Unknown]
  - COVID-19 [Unknown]
  - Dry mouth [Unknown]
